FAERS Safety Report 18464747 (Version 2)
Quarter: 2020Q4

REPORT INFORMATION
  Report Type: Spontaneous
  Country: JP (occurrence: JP)
  Receive Date: 20201104
  Receipt Date: 20201216
  Transmission Date: 20210114
  Serious: Yes (Hospitalization)
  Sender: FDA-Public Use
  Company Number: JP-EISAI MEDICAL RESEARCH-EC-2020-083130

PATIENT
  Sex: Male

DRUGS (2)
  1. DESYREL [Suspect]
     Active Substance: TRAZODONE HYDROCHLORIDE
     Indication: DEPRESSION
     Dosage: DOSE AND FREQUENCY NOT PROVIDED
     Dates: start: 202008
  2. FYCOMPA [Suspect]
     Active Substance: PERAMPANEL
     Indication: EPILEPSY
     Route: 048
     Dates: start: 202008

REACTIONS (2)
  - Disinhibition [Unknown]
  - Sexually inappropriate behaviour [Unknown]

NARRATIVE: CASE EVENT DATE: 2020
